FAERS Safety Report 8432222-7 (Version None)
Quarter: 2012Q2

REPORT INFORMATION
  Report Type: 
  Country: None (occurrence: None)
  Receive Date: 20120613
  Receipt Date: 20120604
  Transmission Date: 20120825
  Serious: Yes (Other)
  Sender: FDA-Public Use
  Company Number: US-BRISTOL-MYERS SQUIBB COMPANY-16660565

PATIENT
  Age: 53 Year
  Sex: Female
  Weight: 98 kg

DRUGS (5)
  1. EFFEXOR XR [Suspect]
     Dosage: 3, 75MG CAPS
  2. PROZAC [Suspect]
  3. KLONOPIN [Suspect]
  4. ABILIFY [Suspect]
     Indication: BIPOLAR DISORDER
     Dosage: 2 MG FOR ABOUT 2-3 DAYS
  5. NEURONTIN [Suspect]

REACTIONS (4)
  - WEIGHT INCREASED [None]
  - CARDIAC FLUTTER [None]
  - RESTLESSNESS [None]
  - TREMOR [None]
